FAERS Safety Report 8576163-3 (Version None)
Quarter: 2012Q3

REPORT INFORMATION
  Report Type: 
  Country: None (occurrence: None)
  Receive Date: 20120807
  Receipt Date: 20120802
  Transmission Date: 20120928
  Serious: No
  Sender: FDA-Public Use
  Company Number: US-PFIZER INC-2012188434

PATIENT
  Sex: Male

DRUGS (3)
  1. EFFEXOR XR [Suspect]
     Dosage: UNK
  2. EFFEXOR [Suspect]
     Dosage: UNK
  3. EFFEXOR [Suspect]
     Dosage: UNK

REACTIONS (3)
  - MUSCLE SPASMS [None]
  - SEXUAL DYSFUNCTION [None]
  - DRUG INEFFECTIVE [None]
